FAERS Safety Report 8376777-X (Version None)
Quarter: 2012Q2

REPORT INFORMATION
  Report Type: 
  Country: None (occurrence: None)
  Receive Date: 20120522
  Receipt Date: 20120301
  Transmission Date: 20120825
  Serious: No
  Sender: FDA-Public Use
  Company Number: US-BRISTOL-MYERS SQUIBB COMPANY-16427494

PATIENT
  Age: 83 Year
  Sex: Female
  Weight: 91 kg

DRUGS (3)
  1. ASPIRIN [Suspect]
  2. COUMADIN [Suspect]
  3. ONGLYZA [Suspect]
     Indication: DIABETES MELLITUS

REACTIONS (1)
  - EPISTAXIS [None]
